FAERS Safety Report 7758567-1 (Version None)
Quarter: 2011Q3

REPORT INFORMATION
  Report Type: 
  Country: None (occurrence: None)
  Receive Date: 20110919
  Receipt Date: 20110907
  Transmission Date: 20111222
  Serious: Yes (Other)
  Sender: FDA-Public Use
  Company Number: CA-ELI_LILLY_AND_COMPANY-CA201109001629

PATIENT
  Sex: Female

DRUGS (11)
  1. ZYPREXA [Suspect]
     Dosage: 20 MG, EACH EVENING
  2. PAROXETINE HCL [Concomitant]
  3. ZYPREXA [Suspect]
     Dosage: 10 MG, EACH EVENING
  4. RISPERIDONE [Concomitant]
  5. ZYPREXA [Suspect]
     Indication: SCHIZOAFFECTIVE DISORDER
     Dosage: 5 MG, EACH EVENING
     Dates: start: 20040115
  6. ZYPREXA [Suspect]
     Dosage: 25 MG, QD
  7. LORAZEPAM [Concomitant]
  8. ZYPREXA [Suspect]
     Dosage: 15 MG, EACH EVENING
  9. CLONAZEPAM [Concomitant]
  10. MIRTAZAPINE [Concomitant]
  11. DIAZEPAM [Concomitant]

REACTIONS (5)
  - HYPERTENSION [None]
  - OVERDOSE [None]
  - DIABETES MELLITUS [None]
  - MYOCARDIAL INFARCTION [None]
  - BLOOD CHOLESTEROL INCREASED [None]
